FAERS Safety Report 11925167 (Version 2)
Quarter: 2016Q1

REPORT INFORMATION
  Report Type: Spontaneous
  Country: US (occurrence: US)
  Receive Date: 20160118
  Receipt Date: 20160322
  Transmission Date: 20160526
  Serious: Yes (Hospitalization, Other)
  Sender: FDA-Public Use
  Company Number: US-BAYER-2016-005685

PATIENT
  Age: 26 Year
  Sex: Female
  Weight: 58.96 kg

DRUGS (3)
  1. NAPROXEN. [Concomitant]
     Active Substance: NAPROXEN
     Dosage: 500 MG, UNK
     Route: 048
     Dates: start: 20160226
  2. MIRENA [Suspect]
     Active Substance: LEVONORGESTREL
     Indication: CONTRACEPTION
     Dosage: 20 MCG/24HR, CONT
     Route: 015
     Dates: start: 20140204, end: 20150302
  3. PRENATAL VITAMINS [Concomitant]
     Active Substance: VITAMINS
     Dosage: UNK
     Route: 048
     Dates: start: 20140204

REACTIONS (8)
  - Device dislocation [None]
  - Device issue [None]
  - Pain [None]
  - Abortion spontaneous [None]
  - Device use error [None]
  - Uterine perforation [None]
  - Discomfort [None]
  - Maternal exposure before pregnancy [None]

NARRATIVE: CASE EVENT DATE: 20140922
